FAERS Safety Report 23559918 (Version 1)
Quarter: 2024Q1

REPORT INFORMATION
  Report Type: Spontaneous
  Country: FR (occurrence: FR)
  Receive Date: 20240223
  Receipt Date: 20240223
  Transmission Date: 20240410
  Serious: Yes (Other)
  Sender: FDA-Public Use
  Company Number: None

PATIENT
  Sex: Female

DRUGS (1)
  1. EXELON [Suspect]
     Active Substance: RIVASTIGMINE TARTRATE
     Indication: Product used for unknown indication
     Dosage: 1 DF, ONCE/SINGLE (1 DOSAGE FORM, ONCE/SINGLE (4,6 MG/24 H)
     Route: 062
     Dates: start: 20240205

REACTIONS (3)
  - Malaise [Recovered/Resolved]
  - Asthenia [Recovering/Resolving]
  - Product administration error [Recovered/Resolved]

NARRATIVE: CASE EVENT DATE: 20240205
